FAERS Safety Report 4733537-6 (Version None)
Quarter: 2005Q3

REPORT INFORMATION
  Report Type: 
  Country: None (occurrence: None)
  Receive Date: 20050729
  Receipt Date: 20050513
  Transmission Date: 20060218
  Serious: No
  Sender: FDA-Public Use
  Company Number: COT_0068_2005

PATIENT
  Age: 61 Year
  Sex: Female
  Weight: 114.76 kg

DRUGS (11)
  1. VENTAVIS [Suspect]
     Indication: PULMONARY HYPERTENSION
     Dosage: 5 MCG Q4HR IH
     Route: 055
     Dates: start: 20050512, end: 20050516
  2. VENTAVIS [Suspect]
     Indication: PULMONARY HYPERTENSION
     Dosage: 2.5 MCG 5XD IH
     Route: 055
     Dates: start: 20050516
  3. ALDACTONE [Concomitant]
  4. DIOVANE [Concomitant]
  5. CLONIDINE [Concomitant]
  6. LASIX [Concomitant]
  7. DARVOCET-N 100 [Concomitant]
  8. ASPIRIN [Concomitant]
  9. ZYRTEC [Concomitant]
  10. K-DUR 10 [Concomitant]
  11. OXYGEN [Concomitant]

REACTIONS (7)
  - ABDOMINAL PAIN [None]
  - CHEST DISCOMFORT [None]
  - CRACKLES LUNG [None]
  - DYSPNOEA [None]
  - FATIGUE [None]
  - NAUSEA [None]
  - PITTING OEDEMA [None]
